FAERS Safety Report 5855343-1 (Version None)
Quarter: 2008Q3

REPORT INFORMATION
  Report Type: 
  Country: None (occurrence: None)
  Receive Date: 20080821
  Receipt Date: 20080815
  Transmission Date: 20090109
  Serious: No
  Sender: FDA-Public Use
  Company Number: US024391

PATIENT
  Sex: Female

DRUGS (3)
  1. FENTORA [Suspect]
     Indication: COMPLEX REGIONAL PAIN SYNDROME
     Dosage: 400 UG
  2. FENTORA [Suspect]
     Indication: COMPLEX REGIONAL PAIN SYNDROME
     Dosage: 600 UG
  3. METHADONE HCL [Concomitant]

REACTIONS (2)
  - DRUG PRESCRIBING ERROR [None]
  - MEDICATION ERROR [None]
